FAERS Safety Report 6144693-X (Version None)
Quarter: 2009Q2

REPORT INFORMATION
  Report Type: 
  Country: None (occurrence: None)
  Receive Date: 20090406
  Receipt Date: 20090324
  Transmission Date: 20091009
  Serious: Yes (Disabling)
  Sender: FDA-Public Use
  Company Number: B0566473A

PATIENT
  Sex: Female

DRUGS (3)
  1. ALKERAN [Suspect]
     Indication: MULTIPLE MYELOMA
     Dosage: .25MGK PER DAY
     Route: 048
     Dates: start: 20080415, end: 20080627
  2. VELCADE [Suspect]
     Indication: MULTIPLE MYELOMA
     Dosage: 1.3MGM2 PER DAY
     Route: 042
     Dates: start: 20080415, end: 20080704
  3. CORTANCYL [Suspect]
     Indication: MULTIPLE MYELOMA
     Dosage: 2MGK PER DAY
     Route: 048
     Dates: start: 20080415, end: 20080627

REACTIONS (2)
  - MUSCLE SPASMS [None]
  - NEUROPATHY PERIPHERAL [None]
